FAERS Safety Report 8616488-6 (Version None)
Quarter: 2012Q3

REPORT INFORMATION
  Report Type: 
  Country: None (occurrence: None)
  Receive Date: 20120823
  Receipt Date: 20120815
  Transmission Date: 20120928
  Serious: Yes (Hospitalization)
  Sender: FDA-Public Use
  Company Number: IL-ELI_LILLY_AND_COMPANY-IL201208006002

PATIENT
  Age: 70 Year
  Sex: Male

DRUGS (2)
  1. CIALIS [Suspect]
     Dosage: 5 MG, UNK
     Route: 048
  2. CIALIS [Suspect]
     Dosage: 10 MG, UNK

REACTIONS (1)
  - MUSCLE CONTRACTIONS INVOLUNTARY [None]
